FAERS Safety Report 25814990 (Version 1)
Quarter: 2025Q3

REPORT INFORMATION
  Report Type: Spontaneous
  Country: US (occurrence: US)
  Receive Date: 20250918
  Receipt Date: 20250918
  Transmission Date: 20251021
  Serious: No
  Sender: AUROBINDO
  Company Number: US-AUROBINDO-AUR-APL-2025-004044

PATIENT
  Age: 72 Year
  Sex: Female
  Weight: 56.699 kg

DRUGS (1)
  1. ALENDRONATE SODIUM [Suspect]
     Active Substance: ALENDRONATE SODIUM
     Indication: Osteoporosis
     Dosage: UNK UNK, EVERY WEEK  (ABOUT 02 YEARS AGO)
     Route: 048
     Dates: end: 20250108

REACTIONS (2)
  - Pain [Unknown]
  - Tooth fracture [Unknown]

NARRATIVE: CASE EVENT DATE: 20250106
